FAERS Safety Report 7445262-1 (Version None)
Quarter: 2011Q2

REPORT INFORMATION
  Report Type: 
  Country: None (occurrence: None)
  Receive Date: 20110429
  Receipt Date: 20110325
  Transmission Date: 20111010
  Serious: Yes (Other)
  Sender: FDA-Public Use
  Company Number: US-BAYER-201034595NA

PATIENT
  Sex: Female

DRUGS (7)
  1. PHENTERMINE [Concomitant]
  2. YASMIN [Suspect]
     Route: 048
     Dates: start: 20010101, end: 20030501
  3. HYDROCHLOROTHIAZIDE [Concomitant]
  4. YAZ [Suspect]
     Route: 048
     Dates: start: 20010101, end: 20030501
  5. YASMIN [Suspect]
     Route: 048
     Dates: start: 20080301, end: 20080901
  6. SPIRONOLACTONE [Concomitant]
  7. YAZ [Suspect]
     Route: 048
     Dates: start: 20080301, end: 20080901

REACTIONS (4)
  - GALLBLADDER DISORDER [None]
  - CHOLECYSTITIS CHRONIC [None]
  - BILIARY DYSKINESIA [None]
  - BILIARY COLIC [None]
